FAERS Safety Report 23603334 (Version 2)
Quarter: 2024Q1

REPORT INFORMATION
  Report Type: Report from Study
  Country: MY (occurrence: MY)
  Receive Date: 20240307
  Receipt Date: 20240327
  Transmission Date: 20240409
  Serious: Yes (Death)
  Sender: FDA-Public Use
  Company Number: MY-AMGEN-MYSNI2024041397

PATIENT
  Age: 63 Year
  Sex: Male
  Weight: 61.9 kg

DRUGS (5)
  1. SOTORASIB [Suspect]
     Active Substance: SOTORASIB
     Indication: K-ras gene mutation
     Dosage: 960 MILLIGRAM, QD
     Route: 065
     Dates: start: 20211222, end: 20230221
  2. SOTORASIB [Suspect]
     Active Substance: SOTORASIB
     Indication: Non-small cell lung cancer
     Dosage: 960 MILLIGRAM, QD
     Route: 065
     Dates: start: 20230222, end: 20230428
  3. ETOPOSIDE [Concomitant]
     Active Substance: ETOPOSIDE
     Dosage: UNK, D 1 -3 Q3W X 4 CYCLES
     Dates: start: 20230222, end: 20230428
  4. ETOPOSIDE [Concomitant]
     Active Substance: ETOPOSIDE
     Dosage: 100 MILLIGRAM/SQ. METER, QWK, 4 CYCLES
     Dates: start: 20230526, end: 20230804
  5. ETOPOSIDE [Concomitant]
     Active Substance: ETOPOSIDE
     Dosage: UNK UNK, D1, Q3WK
     Dates: start: 20230828

REACTIONS (1)
  - Non-small cell lung cancer [Fatal]

NARRATIVE: CASE EVENT DATE: 20230125
